FAERS Safety Report 17146537 (Version 1)
Quarter: 2019Q4

REPORT INFORMATION
  Report Type: Spontaneous
  Country: TR (occurrence: TR)
  Receive Date: 20191212
  Receipt Date: 20191212
  Transmission Date: 20200122
  Serious: Yes (Other)
  Sender: FDA-Public Use
  Company Number: TR-UCBSA-2019052249

PATIENT
  Age: 29 Year
  Sex: Female

DRUGS (3)
  1. VIMPAT [Suspect]
     Active Substance: LACOSAMIDE
     Indication: EPILEPSY
     Dosage: 300 MILLIGRAM, DAILY
  2. KEPPRA [Suspect]
     Active Substance: LEVETIRACETAM
     Indication: EPILEPSY
     Dosage: 3000 MILLIGRAM DAILY
  3. LAMOTRIGINE. [Concomitant]
     Active Substance: LAMOTRIGINE
     Indication: EPILEPSY
     Dosage: 100 MILLIGRAM DAILY

REACTIONS (3)
  - Pineal gland cyst [Unknown]
  - Generalised tonic-clonic seizure [Unknown]
  - Headache [Unknown]
